FAERS Safety Report 24629095 (Version 1)
Quarter: 2024Q4

REPORT INFORMATION
  Report Type: Spontaneous
  Country: US (occurrence: US)
  Receive Date: 20241118
  Receipt Date: 20241118
  Transmission Date: 20250114
  Serious: No
  Sender: AUROBINDO
  Company Number: US-AUROBINDO-AUR-APL-2024-042648

PATIENT
  Age: 41 Year
  Sex: Male
  Weight: 79.8 kg

DRUGS (2)
  1. CLONAZEPAM [Suspect]
     Active Substance: CLONAZEPAM
     Indication: Anxiety
     Dosage: UNK, FEW YEARS AGO
     Route: 048
  2. ATENOLOL [Concomitant]
     Active Substance: ATENOLOL
     Indication: Blood pressure measurement
     Dosage: UNK
     Route: 065

REACTIONS (4)
  - Lethargy [Unknown]
  - Drug ineffective [Unknown]
  - Product use issue [Unknown]
  - Product substitution issue [Unknown]
